FAERS Safety Report 7630248-4 (Version None)
Quarter: 2011Q3

REPORT INFORMATION
  Report Type: 
  Country: None (occurrence: None)
  Receive Date: 20110722
  Receipt Date: 20110719
  Transmission Date: 20111222
  Serious: Yes (Hospitalization, Other)
  Sender: FDA-Public Use
  Company Number: JP-PFIZER INC-2011136417

PATIENT
  Age: 69 Year
  Sex: Male
  Weight: 42 kg

DRUGS (11)
  1. RHEUMATREX [Suspect]
     Dosage: 12 MG, WEEKLY
     Route: 048
     Dates: start: 20110521, end: 20110618
  2. PREDNISOLONE [Suspect]
     Indication: RHEUMATOID ARTHRITIS
     Dosage: 10 MG, 1X/DAY
     Route: 048
  3. FOLIC ACID [Suspect]
     Indication: PROPHYLAXIS
     Dosage: 6 MG, WEEKLY
     Route: 048
  4. POSTERISAN FORTE [Concomitant]
  5. RHEUMATREX [Suspect]
     Dosage: 8 MG, WEEKLY
     Route: 048
     Dates: start: 20101111, end: 20110501
  6. RABEPRAZOLE SODIUM [Suspect]
     Indication: GASTROOESOPHAGEAL REFLUX DISEASE
     Dosage: 10 MG, 1X/DAY
     Route: 048
  7. MUCOSTA [Suspect]
     Indication: GASTRIC MUCOSAL LESION
     Dosage: 100 MG, 2X/DAY
     Route: 048
  8. FERRUM ORAL ^LEK^ [Concomitant]
  9. CELECOXIB [Suspect]
     Indication: PAIN
     Dosage: 200 MG, 2X/DAY
  10. CINAL [Concomitant]
  11. REMICADE [Suspect]
     Indication: RHEUMATOID ARTHRITIS
     Dosage: 160 MG PER SHOT
     Route: 041
     Dates: start: 20110615

REACTIONS (2)
  - PLATELET COUNT DECREASED [None]
  - PNEUMONIA [None]
